FAERS Safety Report 15812275 (Version 1)
Quarter: 2019Q1

REPORT INFORMATION
  Report Type: Spontaneous
  Country: AT (occurrence: AT)
  Receive Date: 20190111
  Receipt Date: 20190111
  Transmission Date: 20190417
  Serious: Yes (Other)
  Sender: FDA-Public Use
  Company Number: PHHY2019AT002306

PATIENT
  Sex: Female
  Weight: 62 kg

DRUGS (16)
  1. PANTELMIN [Concomitant]
     Active Substance: MEBENDAZOLE
     Indication: HELMINTHIC INFECTION
     Dosage: UNK UNK, BID
     Route: 065
     Dates: start: 20180322, end: 20180324
  2. PANTOLOC [Concomitant]
     Active Substance: PANTOPRAZOLE SODIUM
     Dosage: 40 MG, QD
     Route: 065
     Dates: start: 20160114, end: 20160120
  3. DIFLUCAN [Suspect]
     Active Substance: FLUCONAZOLE
     Indication: ASPERGILLUS INFECTION
     Dosage: UNK, QOD
     Route: 065
     Dates: start: 20180331, end: 20180413
  4. AZITHROMYCIN ANHYDROUS. [Suspect]
     Active Substance: AZITHROMYCIN ANHYDROUS
     Indication: ANTIBIOTIC PROPHYLAXIS
     Dosage: 1 OT, QD
     Route: 065
     Dates: start: 20180328, end: 20180330
  5. DIFLUCAN [Suspect]
     Active Substance: FLUCONAZOLE
     Indication: FUNGAL INFECTION
     Dosage: UNK
     Route: 065
  6. AVELOX [Suspect]
     Active Substance: MOXIFLOXACIN HYDROCHLORIDE
     Indication: PNEUMONIA
     Dosage: UNK
     Route: 065
     Dates: start: 20180113, end: 20180113
  7. ITRACONAZOLE. [Suspect]
     Active Substance: ITRACONAZOLE
     Dosage: 400 MG, BID
     Route: 065
     Dates: start: 20170322, end: 20180327
  8. GADOTERIDOL [Suspect]
     Active Substance: GADOTERIDOL
     Dosage: UNK
     Route: 042
     Dates: start: 20161216, end: 20161216
  9. IVERMEC [Suspect]
     Active Substance: IVERMECTIN
     Indication: HELMINTHIC INFECTION
     Dosage: UNK UNK, QOD
     Route: 065
     Dates: start: 20180322, end: 20180326
  10. ANAEROBEX [Suspect]
     Active Substance: METRONIDAZOLE
     Indication: ANTIBIOTIC PROPHYLAXIS
     Dosage: UNK UNK, BID
     Route: 065
     Dates: start: 20180328, end: 20180330
  11. GADOTERIDOL [Suspect]
     Active Substance: GADOTERIDOL
     Indication: PRODUCT USED FOR UNKNOWN INDICATION
     Dosage: UNK
     Route: 042
     Dates: start: 20160520, end: 20160520
  12. IVERMEC [Suspect]
     Active Substance: IVERMECTIN
     Dosage: UNK
     Route: 065
     Dates: start: 20180414, end: 20180418
  13. CORTISONE [Suspect]
     Active Substance: CORTISONE\HYDROCORTISONE
     Indication: PRODUCT USED FOR UNKNOWN INDICATION
     Dosage: 1 DF, QD
     Route: 065
     Dates: start: 20170304, end: 20170306
  14. ITRACONAZOLE. [Suspect]
     Active Substance: ITRACONAZOLE
     Indication: ASPERGILLUS INFECTION
     Dosage: 200 MG, QD
     Route: 065
     Dates: start: 20180414, end: 20180427
  15. MOXIFLOXACIN KRKA [Suspect]
     Active Substance: MOXIFLOXACIN HYDROCHLORIDE
     Indication: PNEUMONIA
     Dosage: 1 DF, QD
     Route: 065
     Dates: start: 20160114, end: 20160120
  16. PANTOLOC [Concomitant]
     Active Substance: PANTOPRAZOLE SODIUM
     Indication: PROPHYLAXIS OF NAUSEA AND VOMITING
     Dosage: UNK
     Route: 065
     Dates: start: 20180328, end: 20180330

REACTIONS (53)
  - Injection site pain [Unknown]
  - Vomiting [Unknown]
  - Joint swelling [Not Recovered/Not Resolved]
  - Adrenal insufficiency [Unknown]
  - Mitochondrial toxicity [Unknown]
  - Pain [Unknown]
  - Constipation [Unknown]
  - Vertigo [Unknown]
  - Incontinence [Unknown]
  - Suicide attempt [Recovered/Resolved]
  - Gait disturbance [Unknown]
  - Joint ankylosis [Not Recovered/Not Resolved]
  - Musculoskeletal pain [Unknown]
  - Muscle spasticity [Unknown]
  - Flatulence [Unknown]
  - Neuralgia [Unknown]
  - Dry eye [Unknown]
  - Tendon injury [Unknown]
  - Agonal rhythm [Unknown]
  - Hypoaesthesia [Unknown]
  - Paraesthesia [Unknown]
  - Gastrointestinal pain [Unknown]
  - Musculoskeletal stiffness [Unknown]
  - Swelling [Not Recovered/Not Resolved]
  - Pain in extremity [Unknown]
  - Muscular weakness [Unknown]
  - Muscle injury [Unknown]
  - Dysgeusia [Unknown]
  - Hormone level abnormal [Unknown]
  - Menstruation irregular [Unknown]
  - Mucosal dryness [Unknown]
  - Neuropathy peripheral [Unknown]
  - Suicidal ideation [Recovered/Resolved]
  - Adverse food reaction [Unknown]
  - Photopsia [Unknown]
  - Alopecia [Unknown]
  - Asthenia [Unknown]
  - Abdominal pain [Unknown]
  - Nausea [Unknown]
  - Fatigue [Unknown]
  - Diarrhoea [Unknown]
  - Nervous system disorder [Unknown]
  - Vein rupture [Unknown]
  - Panic attack [Not Recovered/Not Resolved]
  - Weight decreased [Recovered/Resolved]
  - Metabolic disorder [Unknown]
  - Skin irritation [Unknown]
  - Temperature intolerance [Unknown]
  - Depression [Not Recovered/Not Resolved]
  - Vision blurred [Unknown]
  - Visual impairment [Unknown]
  - Arthralgia [Unknown]
  - Headache [Unknown]
